FAERS Safety Report 7888020-6 (Version None)
Quarter: 2011Q4

REPORT INFORMATION
  Report Type: 
  Country: None (occurrence: None)
  Receive Date: 20111101
  Receipt Date: 20111021
  Transmission Date: 20120403
  Serious: Yes (Hospitalization)
  Sender: FDA-Public Use
  Company Number: 2011SP049770

PATIENT
  Age: 56 Year
  Sex: Female

DRUGS (3)
  1. TICE BCG [Suspect]
  2. MITOMYCIN [Suspect]
  3. TICE BCG [Suspect]
     Indication: BLADDER TRANSITIONAL CELL CARCINOMA
     Dates: start: 20100201, end: 20110902

REACTIONS (1)
  - CHEMICAL CYSTITIS [None]
